FAERS Safety Report 4667637-6 (Version None)
Quarter: 2005Q2

REPORT INFORMATION
  Report Type: 
  Country: None (occurrence: None)
  Receive Date: 20050520
  Receipt Date: 20040607
  Transmission Date: 20051028
  Serious: Yes (Other)
  Sender: FDA-Public Use
  Company Number: PHNU2004DE02050

PATIENT
  Sex: Male

DRUGS (7)
  1. ZOMETA [Suspect]
     Indication: PROSTATE CANCER METASTATIC
     Dosage: 4 MG, QMO
     Dates: start: 20010101
  2. AREDIA [Suspect]
     Indication: METASTASES TO BONE
     Dosage: 90 MG, QMO
     Route: 042
     Dates: start: 19990101, end: 20010101
  3. TAXOTERE [Concomitant]
     Indication: PROSTATE CANCER METASTATIC
     Dosage: 12 CYCLES
     Route: 042
     Dates: start: 20031101, end: 20031101
  4. ROCALTROL [Concomitant]
     Dosage: UNKNOWN
     Route: 048
     Dates: start: 20031101, end: 20031101
  5. NIZORAL [Concomitant]
     Dosage: UNKNOWN
     Route: 065
     Dates: start: 20040304
  6. HYDROCORTISON [Concomitant]
     Dosage: UNKNOWN
     Route: 065
     Dates: start: 20040304
  7. DECAPEPTYL                              /SCH/ [Concomitant]
     Dosage: UNKNOWN
     Route: 065
     Dates: start: 19950101

REACTIONS (8)
  - ACTINOMYCOSIS [None]
  - BONE INFECTION [None]
  - GINGIVITIS [None]
  - HISTOLOGY ABNORMAL [None]
  - OSTEONECROSIS [None]
  - PRIMARY SEQUESTRUM [None]
  - SEQUESTRECTOMY [None]
  - TOOTHACHE [None]
